FAERS Safety Report 23122089 (Version 2)
Quarter: 2023Q4

REPORT INFORMATION
  Report Type: Report from Study
  Country: CA (occurrence: CA)
  Receive Date: 20231030
  Receipt Date: 20231121
  Transmission Date: 20240110
  Serious: Yes (Hospitalization)
  Sender: FDA-Public Use
  Company Number: CA-ABBVIE-5465751

PATIENT
  Sex: Female

DRUGS (3)
  1. RINVOQ [Suspect]
     Active Substance: UPADACITINIB
     Indication: Ankylosing spondylitis
     Dosage: DRUG END DATE-2023, FORM STRENGTH: 15 MILLIGRAM
     Route: 048
     Dates: start: 202306
  2. RINVOQ [Suspect]
     Active Substance: UPADACITINIB
     Indication: Ankylosing spondylitis
     Route: 048
     Dates: start: 202310, end: 202310
  3. GRAVOL [Concomitant]
     Active Substance: DIMENHYDRINATE
     Indication: Product used for unknown indication

REACTIONS (11)
  - Escherichia infection [Unknown]
  - Sinusitis [Unknown]
  - Hypophagia [Unknown]
  - Bacterial test positive [Unknown]
  - Liver disorder [Unknown]
  - Weight increased [Unknown]
  - Dysphagia [Unknown]
  - Respiratory tract infection [Not Recovered/Not Resolved]
  - Fluid intake reduced [Unknown]
  - Glucose tolerance impaired [Unknown]
  - Immunosuppression [Unknown]

NARRATIVE: CASE EVENT DATE: 20230101
